FAERS Safety Report 20114885 (Version 1)
Quarter: 2021Q4

REPORT INFORMATION
  Report Type: Spontaneous
  Country: US (occurrence: US)
  Receive Date: 20211125
  Receipt Date: 20211125
  Transmission Date: 20220303
  Serious: No
  Sender: FDA-Public Use
  Company Number: US-SA-SAC20211119001075

PATIENT
  Age: 41 Year
  Sex: Female

DRUGS (9)
  1. AUBAGIO [Suspect]
     Active Substance: TERIFLUNOMIDE
     Indication: Multiple sclerosis
     Dosage: 14 MG, QD
     Route: 048
     Dates: start: 20211015
  2. CICLOPIROX [Concomitant]
     Active Substance: CICLOPIROX
     Dosage: 14MG
  3. SUMATRIPTAN SUCCINATE [Concomitant]
     Active Substance: SUMATRIPTAN SUCCINATE
     Dosage: 14MG
  4. NAPROXEN [Concomitant]
     Active Substance: NAPROXEN
  5. GABAPENTIN [Concomitant]
     Active Substance: GABAPENTIN
  6. AMANTADINE [Concomitant]
     Active Substance: AMANTADINE
  7. AMITRIPTYLINE [Concomitant]
     Active Substance: AMITRIPTYLINE
  8. BACLOFEN [Concomitant]
     Active Substance: BACLOFEN
     Indication: Multiple sclerosis
  9. LAMOTRIGINE [Concomitant]
     Active Substance: LAMOTRIGINE

REACTIONS (3)
  - Decreased appetite [Unknown]
  - Weight decreased [Unknown]
  - Nausea [Unknown]

NARRATIVE: CASE EVENT DATE: 20210101
